FAERS Safety Report 10166029 (Version 1)
Quarter: 2014Q2

REPORT INFORMATION
  Report Type: Spontaneous
  Country: US (occurrence: US)
  Receive Date: 20140511
  Receipt Date: 20140511
  Transmission Date: 20141212
  Serious: No
  Sender: FDA-Public Use
  Company Number: US-009507513-1404USA008142

PATIENT
  Sex: Female

DRUGS (1)
  1. CORICIDIN HCP MAXIMUM STRENGTH FLU [Suspect]
     Indication: NASOPHARYNGITIS
     Dosage: UNK, UNKNOWN
     Route: 048

REACTIONS (3)
  - Mental impairment [Unknown]
  - Underdose [Unknown]
  - Off label use [Unknown]
